FAERS Safety Report 7707945-5 (Version None)
Quarter: 2011Q3

REPORT INFORMATION
  Report Type: 
  Country: None (occurrence: None)
  Receive Date: 20110824
  Receipt Date: 20110815
  Transmission Date: 20111222
  Serious: Yes (Hospitalization)
  Sender: FDA-Public Use
  Company Number: US-ASTRAZENECA-2011SE49076

PATIENT

DRUGS (8)
  1. HYDROCORTISONE AC [Concomitant]
     Route: 054
     Dates: start: 20110204
  2. NOVOLOG FLEXPEN SYRINGE [Concomitant]
     Dosage: INJECT SUB-Q AS DIRECTED PER SLIDING SLIDING SCALE
     Route: 058
  3. MIRTAZAPINE [Concomitant]
     Route: 048
     Dates: start: 20110112
  4. SEROQUEL [Suspect]
     Route: 048
     Dates: start: 20110114
  5. CLONAZEPAM [Concomitant]
     Route: 048
     Dates: start: 20110204
  6. HYDROCODON-ACETAMINOPHEN [Concomitant]
     Indication: PAIN
     Dosage: 5-500 1,2 TABLETS BY MOUTH EVERY 6 HOURS IF NEEDED
     Dates: start: 20110204
  7. CITALOPRAM HYDROBROMIDE [Concomitant]
     Route: 048
     Dates: start: 20110114
  8. LANTUS [Concomitant]
     Dosage: 100 UNITS/ML INJECT 25 SUB-Q AT BEDTIME
     Route: 058
     Dates: start: 20110107

REACTIONS (2)
  - MENTAL DISORDER [None]
  - PAIN [None]
